FAERS Safety Report 6499197-1 (Version None)
Quarter: 2009Q4

REPORT INFORMATION
  Report Type: 
  Country: None (occurrence: None)
  Receive Date: 20091127
  Receipt Date: 20081006
  Transmission Date: 20100525
  Serious: Yes (Disabling)
  Sender: FDA-Public Use
  Company Number: WAES 0805USA00893

PATIENT
  Age: 62 Year
  Sex: Female

DRUGS (5)
  1. FOSAMAX [Suspect]
     Indication: OSTEOPOROSIS
     Dosage: 5 MG/DAILY/PO 70 MG/WKY/PO
     Route: 048
     Dates: start: 20000206, end: 20011115
  2. FOSAMAX [Suspect]
     Indication: OSTEOPOROSIS PROPHYLAXIS
     Dosage: 5 MG/DAILY/PO 70 MG/WKY/PO
     Route: 048
     Dates: start: 20000206, end: 20011115
  3. FOSAMAX [Suspect]
     Indication: OSTEOPOROSIS
     Dosage: 5 MG/DAILY/PO 70 MG/WKY/PO
     Route: 048
     Dates: start: 20011116, end: 20060705
  4. FOSAMAX [Suspect]
     Indication: OSTEOPOROSIS PROPHYLAXIS
     Dosage: 5 MG/DAILY/PO 70 MG/WKY/PO
     Route: 048
     Dates: start: 20011116, end: 20060705
  5. LIPITOR [Concomitant]

REACTIONS (14)
  - ANGIOPATHY [None]
  - DEVICE RELATED INFECTION [None]
  - FUNGAL INFECTION [None]
  - HYPERLIPIDAEMIA [None]
  - IRRITABLE BOWEL SYNDROME [None]
  - JAW CYST [None]
  - OSTEONECROSIS [None]
  - PERIODONTITIS [None]
  - RASH GENERALISED [None]
  - RESORPTION BONE INCREASED [None]
  - TOOTH LOSS [None]
  - UPPER LIMB FRACTURE [None]
  - VARICOSE VEIN [None]
  - WRIST FRACTURE [None]
